FAERS Safety Report 23675868 (Version 1)
Quarter: 2024Q1

REPORT INFORMATION
  Report Type: Spontaneous
  Country: BR (occurrence: BR)
  Receive Date: 20240327
  Receipt Date: 20240327
  Transmission Date: 20240410
  Serious: Yes (Hospitalization, Other)
  Sender: FDA-Public Use
  Company Number: BR-ABBVIE-5689067

PATIENT
  Sex: Female

DRUGS (1)
  1. RINVOQ [Suspect]
     Active Substance: UPADACITINIB
     Indication: Dermatitis atopic
     Route: 048

REACTIONS (10)
  - Dengue fever [Unknown]
  - Platelet count decreased [Recovered/Resolved]
  - Erythema [Recovering/Resolving]
  - Malaise [Unknown]
  - Lymphocyte count decreased [Not Recovered/Not Resolved]
  - Aspartate aminotransferase abnormal [Not Recovered/Not Resolved]
  - Hypovolaemic shock [Unknown]
  - Haemoglobin decreased [Unknown]
  - Petechiae [Recovering/Resolving]
  - Alanine aminotransferase abnormal [Not Recovered/Not Resolved]

NARRATIVE: CASE EVENT DATE: 20240304
